FAERS Safety Report 21993079 (Version 1)
Quarter: 2023Q1

REPORT INFORMATION
  Report Type: Spontaneous
  Country: PH (occurrence: None)
  Receive Date: 20230215
  Receipt Date: 20230215
  Transmission Date: 20230418
  Serious: Yes (Hospitalization)
  Sender: FDA-Public Use
  Company Number: 2023A033433

PATIENT
  Age: 20021 Day
  Sex: Male
  Weight: 81 kg

DRUGS (5)
  1. BRILINTA [Suspect]
     Active Substance: TICAGRELOR
     Indication: Angioplasty
     Route: 048
     Dates: start: 20230124, end: 20230126
  2. ATORVASTATIN CALCIUM [Concomitant]
     Active Substance: ATORVASTATIN CALCIUM
     Route: 048
     Dates: start: 202301
  3. TMZ-MR [Concomitant]
     Route: 048
     Dates: start: 202301
  4. IVABRADINE HYDROCHLORIDE [Concomitant]
     Active Substance: IVABRADINE HYDROCHLORIDE
     Route: 048
     Dates: start: 202301
  5. PLETAAL SR [Concomitant]

REACTIONS (2)
  - Malaise [Unknown]
  - Epistaxis [Unknown]

NARRATIVE: CASE EVENT DATE: 20230125
